FAERS Safety Report 12895227 (Version 1)
Quarter: 2016Q4

REPORT INFORMATION
  Report Type: Spontaneous
  Country: US (occurrence: US)
  Receive Date: 20161028
  Receipt Date: 20161028
  Transmission Date: 20170207
  Serious: No
  Sender: FDA-Public Use
  Company Number: None

PATIENT
  Age: 20 Year
  Sex: Male

DRUGS (4)
  1. TESSALON [Concomitant]
     Active Substance: BENZONATATE
  2. VIVITROL [Suspect]
     Active Substance: NALTREXONE
     Indication: DRUG DEPENDENCE
     Dosage: VIVITROL 380 MG - IM - Q4 WEEKS
     Route: 030
     Dates: start: 201607
  3. ALBUTEROL. [Concomitant]
     Active Substance: ALBUTEROL
  4. MUCINEX [Concomitant]
     Active Substance: GUAIFENESIN

REACTIONS (1)
  - Bronchitis [None]

NARRATIVE: CASE EVENT DATE: 201609
